FAERS Safety Report 13443097 (Version 1)
Quarter: 2017Q2

REPORT INFORMATION
  Report Type: Report from Study
  Country: FR (occurrence: FR)
  Receive Date: 20170414
  Receipt Date: 20170414
  Transmission Date: 20170830
  Serious: Yes (Hospitalization)
  Sender: FDA-Public Use
  Company Number: FR-ROCHE-1192542

PATIENT
  Age: 50 Year
  Sex: Female
  Weight: 46 kg

DRUGS (48)
  1. PENTASA [Concomitant]
     Active Substance: MESALAMINE
     Indication: CROHN^S DISEASE
     Route: 065
     Dates: start: 2005
  2. AERIUS [Concomitant]
     Active Substance: DESLORATADINE
     Route: 065
     Dates: start: 20131003
  3. AERIUS [Concomitant]
     Active Substance: DESLORATADINE
     Dosage: DOSE RECEIVED ON 20/MAR/2014 (LRD FOR V10: 19/MAR/2014)
     Route: 065
  4. DAFALGAN [Concomitant]
     Active Substance: ACETAMINOPHEN
     Route: 065
     Dates: start: 20130404
  5. DAFALGAN [Concomitant]
     Active Substance: ACETAMINOPHEN
     Route: 065
     Dates: start: 20130917
  6. SOLU-MEDROL [Concomitant]
     Active Substance: METHYLPREDNISOLONE SODIUM SUCCINATE
     Indication: MULTIPLE SCLEROSIS
     Route: 065
     Dates: start: 2005, end: 201003
  7. OCRELIZUMAB [Suspect]
     Active Substance: OCRELIZUMAB
     Route: 042
     Dates: start: 20140320
  8. IMODIUM [Concomitant]
     Active Substance: LOPERAMIDE HYDROCHLORIDE
     Indication: CROHN^S DISEASE
     Route: 065
     Dates: start: 2005
  9. VESICARE [Concomitant]
     Active Substance: SOLIFENACIN SUCCINATE
     Indication: MULTIPLE SCLEROSIS
     Route: 065
     Dates: start: 20121013, end: 201211
  10. AERIUS [Concomitant]
     Active Substance: DESLORATADINE
     Route: 065
     Dates: start: 20121018
  11. DAFALGAN [Concomitant]
     Active Substance: ACETAMINOPHEN
     Route: 065
     Dates: start: 20121030
  12. SMECTA [Concomitant]
     Active Substance: MONTMORILLONITE
     Route: 065
     Dates: start: 20140418
  13. XATRAL [Concomitant]
     Active Substance: ALFUZOSIN
     Indication: MULTIPLE SCLEROSIS
     Route: 065
     Dates: start: 20121013, end: 201211
  14. AERIUS [Concomitant]
     Active Substance: DESLORATADINE
     Route: 065
     Dates: start: 20121030
  15. AERIUS [Concomitant]
     Active Substance: DESLORATADINE
     Route: 065
     Dates: start: 20130404
  16. AERIUS [Concomitant]
     Active Substance: DESLORATADINE
     Route: 065
     Dates: start: 20130917
  17. DAFALGAN [Concomitant]
     Active Substance: ACETAMINOPHEN
     Route: 065
     Dates: start: 20121018
  18. METHYLPREDNISOLONE. [Concomitant]
     Active Substance: METHYLPREDNISOLONE
     Route: 065
     Dates: start: 20121030
  19. METHYLPREDNISOLONE. [Concomitant]
     Active Substance: METHYLPREDNISOLONE
     Dosage: DOSE RECEIVED ON 20/MAR/2014 (LRD FOR V10: 19/MAR/2014)
     Route: 065
  20. AMOXICILLIN. [Concomitant]
     Active Substance: AMOXICILLIN
     Indication: LUNG INFECTION
     Route: 065
     Dates: start: 20140201, end: 20140211
  21. MIKICORT [Concomitant]
     Active Substance: BUDESONIDE
     Route: 065
     Dates: start: 20140418, end: 20140612
  22. OCRELIZUMAB [Suspect]
     Active Substance: OCRELIZUMAB
     Indication: PRIMARY PROGRESSIVE MULTIPLE SCLEROSIS
     Dosage: ON DAYS 1 AND 15 OF EVERY 24 WEEK TREATMENT CYCLE?ON 17/APR/2014, THE PATIENT DISCONTINUED THE STUDY
     Route: 042
     Dates: start: 20121018
  23. OCRELIZUMAB [Suspect]
     Active Substance: OCRELIZUMAB
     Dosage: FREQUENCY: AS PER PROTOCOL
     Route: 042
     Dates: start: 20140304, end: 20140304
  24. AERIUS [Concomitant]
     Active Substance: DESLORATADINE
     Route: 065
     Dates: start: 20140304
  25. METHYLPREDNISOLONE. [Concomitant]
     Active Substance: METHYLPREDNISOLONE
     Route: 065
     Dates: start: 20130414
  26. METHYLPREDNISOLONE. [Concomitant]
     Active Substance: METHYLPREDNISOLONE
     Route: 065
     Dates: start: 20140304
  27. SOLU-MEDROL [Concomitant]
     Active Substance: METHYLPREDNISOLONE SODIUM SUCCINATE
     Route: 065
     Dates: start: 20111103, end: 20111107
  28. OCRELIZUMAB [Suspect]
     Active Substance: OCRELIZUMAB
     Dosage: FREQUENCY: AS PER PROTOCOL
     Route: 042
     Dates: start: 20130917, end: 20130917
  29. AERIUS [Concomitant]
     Active Substance: DESLORATADINE
     Route: 065
     Dates: start: 20130416
  30. DAFALGAN [Concomitant]
     Active Substance: ACETAMINOPHEN
     Route: 065
     Dates: start: 20130416
  31. DAFALGAN [Concomitant]
     Active Substance: ACETAMINOPHEN
     Dosage: DOSE RECEIVED ON 20/MAR/2014 (LRD FOR V10: 19/MAR/2014)
     Route: 065
  32. METHYLPREDNISOLONE. [Concomitant]
     Active Substance: METHYLPREDNISOLONE
     Route: 065
     Dates: start: 20130903
  33. ROCEPHINE [Concomitant]
     Active Substance: CEFTRIAXONE SODIUM
     Indication: BRONCHITIS
     Route: 065
     Dates: start: 20121210, end: 20121216
  34. SOLU-MEDROL [Concomitant]
     Active Substance: METHYLPREDNISOLONE SODIUM SUCCINATE
     Route: 065
     Dates: start: 20120725, end: 20120729
  35. FAMPRIDINE [Concomitant]
     Active Substance: DALFAMPRIDINE
     Indication: MULTIPLE SCLEROSIS
     Route: 065
     Dates: start: 20130918, end: 20130921
  36. LIORESAL [Concomitant]
     Active Substance: BACLOFEN
     Indication: MUSCLE SPASTICITY
     Route: 065
     Dates: start: 20131213
  37. DOLIPRANE [Concomitant]
     Active Substance: ACETAMINOPHEN
     Route: 065
     Dates: start: 20140814
  38. OCRELIZUMAB [Suspect]
     Active Substance: OCRELIZUMAB
     Dosage: FREQUENCY: AS PER PROTOCOL
     Route: 042
     Dates: start: 20130404, end: 20130404
  39. OCRELIZUMAB [Suspect]
     Active Substance: OCRELIZUMAB
     Dosage: FREQUENCY: AS PER PROTOCOL
     Route: 042
     Dates: start: 20130416, end: 20130416
  40. CLAVULANIC ACID [Concomitant]
     Active Substance: CLAVULANIC ACID
     Indication: LUNG INFECTION
     Route: 065
     Dates: start: 20140201, end: 20140211
  41. MIKICORT [Concomitant]
     Active Substance: BUDESONIDE
     Route: 065
     Dates: start: 20140613, end: 20140701
  42. OCRELIZUMAB [Suspect]
     Active Substance: OCRELIZUMAB
     Dosage: ON DAYS 1 AND 15 OF EVERY 24 WEEK TREATMENT CYCLE
     Route: 042
     Dates: start: 20121030, end: 20121030
  43. DAFALGAN [Concomitant]
     Active Substance: ACETAMINOPHEN
     Route: 065
     Dates: start: 20131003
  44. DAFALGAN [Concomitant]
     Active Substance: ACETAMINOPHEN
     Route: 065
     Dates: start: 20140304
  45. METHYLPREDNISOLONE. [Concomitant]
     Active Substance: METHYLPREDNISOLONE
     Route: 065
     Dates: start: 20121018
  46. METHYLPREDNISOLONE. [Concomitant]
     Active Substance: METHYLPREDNISOLONE
     Route: 065
     Dates: start: 20130404
  47. METHYLPREDNISOLONE. [Concomitant]
     Active Substance: METHYLPREDNISOLONE
     Route: 065
     Dates: start: 20130917
  48. OCRELIZUMAB [Suspect]
     Active Substance: OCRELIZUMAB
     Dosage: FREQUENCY: AS PER PROTOCOL
     Route: 042
     Dates: start: 20131003, end: 20131003

REACTIONS (1)
  - Erysipelas [Recovered/Resolved]

NARRATIVE: CASE EVENT DATE: 20130212
